FAERS Safety Report 12495297 (Version 2)
Quarter: 2016Q3

REPORT INFORMATION
  Report Type: Spontaneous
  Country: US (occurrence: US)
  Receive Date: 20160624
  Receipt Date: 20160708
  Transmission Date: 20161109
  Serious: No
  Sender: FDA-Public Use
  Company Number: US-PFIZER INC-2016306555

PATIENT
  Age: 33 Year
  Sex: Female

DRUGS (6)
  1. FLUDARABINE PHOSPHATE. [Suspect]
     Active Substance: FLUDARABINE PHOSPHATE
     Indication: B-CELL TYPE ACUTE LEUKAEMIA
     Dosage: UNK (FLAG-IDA)
     Dates: start: 20150930
  2. CYTARABINE. [Suspect]
     Active Substance: CYTARABINE
     Indication: SALVAGE THERAPY
     Dosage: SALVAGE 2 TREATMENT
     Dates: start: 20151020
  3. IDARUBICIN HCL [Suspect]
     Active Substance: IDARUBICIN HYDROCHLORIDE
     Indication: B-CELL TYPE ACUTE LEUKAEMIA
     Dosage: UNK (FLAG-IDA)
     Dates: start: 20150930
  4. CYTARABINE. [Suspect]
     Active Substance: CYTARABINE
     Indication: ACUTE LYMPHOCYTIC LEUKAEMIA
     Dosage: UNK (FLAG-IDA)
     Dates: start: 20150930
  5. CYTARABINE. [Suspect]
     Active Substance: CYTARABINE
     Indication: B-CELL TYPE ACUTE LEUKAEMIA
  6. G-CSF [Suspect]
     Active Substance: GRANULOCYTE COLONY-STIMULATING FACTOR NOS
     Indication: B-CELL TYPE ACUTE LEUKAEMIA
     Dosage: UNK (FLAG-IDA)
     Dates: start: 20150930

REACTIONS (3)
  - Disease progression [Unknown]
  - Product use issue [Unknown]
  - B-cell type acute leukaemia [Unknown]

NARRATIVE: CASE EVENT DATE: 20151029
